FAERS Safety Report 4933036-2 (Version None)
Quarter: 2006Q1

REPORT INFORMATION
  Report Type: 
  Country: None (occurrence: None)
  Receive Date: 20060301
  Receipt Date: 20060214
  Transmission Date: 20060701
  Serious: Yes (Other)
  Sender: FDA-Public Use
  Company Number: PHBS2006US02563

PATIENT
  Age: 63 Year
  Sex: Male

DRUGS (3)
  1. VISUDYNE [Suspect]
     Indication: RETINOPATHY
     Dosage: 6 MG/M^2 ONCE IV
     Route: 042
     Dates: start: 20040401, end: 20040401
  2. WARFARIN SODIUM [Concomitant]
  3. ATORVASTATIN CALCIUM [Concomitant]

REACTIONS (6)
  - CHOROIDAL NEOVASCULARISATION [None]
  - DETACHMENT OF RETINAL PIGMENT EPITHELIUM [None]
  - RETINAL DEGENERATION [None]
  - RETINAL DISORDER [None]
  - RETINAL HAEMORRHAGE [None]
  - VISUAL ACUITY REDUCED [None]
